FAERS Safety Report 25340958 (Version 1)
Quarter: 2025Q2

REPORT INFORMATION
  Report Type: Spontaneous
  Country: US (occurrence: US)
  Receive Date: 20250521
  Receipt Date: 20250521
  Transmission Date: 20250717
  Serious: Yes (Hospitalization)
  Sender: ROCHE
  Company Number: US-ROCHE-10000285060

PATIENT
  Sex: Male
  Weight: 72.57 kg

DRUGS (1)
  1. ERIVEDGE [Suspect]
     Active Substance: VISMODEGIB
     Indication: Basal cell carcinoma
     Route: 048
     Dates: start: 20250118

REACTIONS (4)
  - Hypoglycaemia [Unknown]
  - Incoherent [Unknown]
  - Ageusia [Not Recovered/Not Resolved]
  - Weight decreased [Unknown]
